FAERS Safety Report 24794439 (Version 1)
Quarter: 2024Q4

REPORT INFORMATION
  Report Type: Spontaneous
  Country: US (occurrence: US)
  Receive Date: 20241231
  Receipt Date: 20241231
  Transmission Date: 20250114
  Serious: No
  Sender: MYLAN
  Company Number: US-MYLANLABS-2024M1115856

PATIENT
  Age: 78 Year
  Sex: Female

DRUGS (1)
  1. ARMODAFINIL [Suspect]
     Active Substance: ARMODAFINIL
     Indication: Narcolepsy
     Dosage: 1.5 DOSAGE FORM, QD (TAKING 1 AND A HALF TABLET PER DAY)
     Route: 048
     Dates: start: 202411

REACTIONS (4)
  - Wrong technique in product usage process [Unknown]
  - Extra dose administered [Unknown]
  - Drug ineffective [Unknown]
  - Product substitution issue [Unknown]
